FAERS Safety Report 11853525 (Version 1)
Quarter: 2015Q4

REPORT INFORMATION
  Report Type: Spontaneous
  Country: US (occurrence: US)
  Receive Date: 20151218
  Receipt Date: 20151218
  Transmission Date: 20160305
  Serious: No
  Sender: FDA-Public Use
  Company Number: US-BAUSCH-BL-2015-017417

PATIENT
  Sex: Male
  Weight: 61.74 kg

DRUGS (3)
  1. LORAZEPAM. [Concomitant]
     Active Substance: LORAZEPAM
     Indication: ANXIETY
     Route: 048
  2. XENAZINE [Suspect]
     Active Substance: TETRABENAZINE
     Indication: CEREBRAL PALSY
     Route: 048
     Dates: start: 20150420
  3. XENAZINE [Suspect]
     Active Substance: TETRABENAZINE
     Route: 048
     Dates: start: 20150620

REACTIONS (9)
  - Back pain [Unknown]
  - Drug ineffective [Unknown]
  - Somnolence [Unknown]
  - Speech disorder [Unknown]
  - Nasopharyngitis [Unknown]
  - Tremor [Unknown]
  - Neck pain [Unknown]
  - Dental operation [Unknown]
  - Cough [Unknown]
